FAERS Safety Report 7924300-3 (Version None)
Quarter: 2011Q4

REPORT INFORMATION
  Report Type: 
  Country: None (occurrence: None)
  Receive Date: 20111117
  Receipt Date: 20110321
  Transmission Date: 20120403
  Serious: No
  Sender: FDA-Public Use
  Company Number: US-AMGEN-USASP2011015318

PATIENT
  Age: 55 Year
  Sex: Female

DRUGS (4)
  1. ENBREL [Suspect]
     Indication: RHEUMATOID ARTHRITIS
  2. LASIX [Concomitant]
  3. ENBREL [Suspect]
     Indication: PSORIATIC ARTHROPATHY
     Dosage: 50 MG, QWK
     Dates: start: 20110218
  4. ENBREL [Suspect]
     Indication: FIBROMYALGIA

REACTIONS (14)
  - MUSCULOSKELETAL STIFFNESS [None]
  - SWELLING [None]
  - WEIGHT INCREASED [None]
  - VULVOVAGINAL PAIN [None]
  - MUSCULOSKELETAL DISCOMFORT [None]
  - ARTHRALGIA [None]
  - ERYTHEMA [None]
  - URINE OUTPUT DECREASED [None]
  - OEDEMA PERIPHERAL [None]
  - JOINT SWELLING [None]
  - BACK PAIN [None]
  - ABDOMINAL PAIN [None]
  - LOWER EXTREMITY MASS [None]
  - BONE PAIN [None]
